FAERS Safety Report 13777224 (Version 6)
Quarter: 2019Q1

REPORT INFORMATION
  Report Type: Spontaneous
  Country: US (occurrence: US)
  Receive Date: 20170721
  Receipt Date: 20190122
  Transmission Date: 20190417
  Serious: No
  Sender: FDA-Public Use
  Company Number: US-PFIZER INC-2017116393

PATIENT
  Age: 55 Year
  Sex: Female
  Weight: 66 kg

DRUGS (12)
  1. GENOTROPIN [Suspect]
     Active Substance: SOMATROPIN
     Dosage: 4 UG, UNK
  2. GENOTROPIN [Suspect]
     Active Substance: SOMATROPIN
     Dosage: 0.8 MG, DAILY
     Dates: start: 20170209
  3. GENOTROPIN [Suspect]
     Active Substance: SOMATROPIN
     Dosage: 0.5 MG, UNK
  4. SYNTHROID [Concomitant]
     Active Substance: LEVOTHYROXINE SODIUM
     Indication: HYPOTHYROIDISM
     Dosage: 150 UG, 1X/DAY
     Route: 048
  5. GENOTROPIN [Suspect]
     Active Substance: SOMATROPIN
     Dosage: 0.6 MG, DAILY
     Dates: start: 201701
  6. GENOTROPIN [Suspect]
     Active Substance: SOMATROPIN
     Indication: GROWTH HORMONE DEFICIENCY
     Dosage: 2 UG, UNK
  7. GENOTROPIN [Suspect]
     Active Substance: SOMATROPIN
     Indication: POST PROCEDURAL HYPOTHYROIDISM
     Dosage: 0.4 MG, 1X/DAY
     Dates: start: 201701
  8. GENOTROPIN [Suspect]
     Active Substance: SOMATROPIN
     Dosage: 6 UG, UNK
  9. GENOTROPIN [Suspect]
     Active Substance: SOMATROPIN
     Dosage: 6 UG, DAILY
     Dates: start: 201703
  10. LIOTHYRONINE [Concomitant]
     Active Substance: LIOTHYRONINE
     Dosage: 5 UG, DAILY
  11. GENOTROPIN [Suspect]
     Active Substance: SOMATROPIN
     Dosage: 0.6 MG, DAILY
     Dates: start: 20170110
  12. ESTRADIOL. [Concomitant]
     Active Substance: ESTRADIOL
     Indication: HORMONE REPLACEMENT THERAPY
     Dosage: 0.5 MG, 1X/DAY
     Route: 048

REACTIONS (12)
  - Blood cholesterol increased [Unknown]
  - Device malfunction [Not Recovered/Not Resolved]
  - Product prescribing error [Unknown]
  - Abdominal distension [Unknown]
  - Product dose omission [Not Recovered/Not Resolved]
  - Blood thyroid stimulating hormone decreased [Unknown]
  - Off label use [Unknown]
  - Intentional product misuse [Unknown]
  - Tri-iodothyronine decreased [Unknown]
  - Non-high-density lipoprotein cholesterol increased [Unknown]
  - Injection site bruising [Unknown]
  - Low density lipoprotein increased [Unknown]

NARRATIVE: CASE EVENT DATE: 20170209
